FAERS Safety Report 9292256 (Version 1)
Quarter: 2013Q2

REPORT INFORMATION
  Report Type: Report from Study
  Country: SA (occurrence: SA)
  Receive Date: 20130516
  Receipt Date: 20130516
  Transmission Date: 20140414
  Serious: Yes (Other)
  Sender: FDA-Public Use
  Company Number: SA-ROCHE-1173709

PATIENT
  Age: 46 Year
  Sex: Male
  Weight: 95 kg

DRUGS (3)
  1. PEG-INTERFERON ALFA 2A [Suspect]
     Indication: CHRONIC HEPATITIS C
     Dosage: LAST DOSE PRIOR TO SAE 17/DEC/2012
     Route: 058
     Dates: start: 20120611
  2. PEG-INTERFERON ALFA 2A [Suspect]
     Route: 065
  3. RIBAVIRIN [Suspect]
     Indication: CHRONIC HEPATITIS C
     Dosage: LAST DOSE PRIOR TO SAE 17/DEC/2012
     Route: 048
     Dates: start: 20120611

REACTIONS (1)
  - VIIth nerve paralysis [Recovered/Resolved]
